FAERS Safety Report 5329411-7 (Version None)
Quarter: 2007Q1

REPORT INFORMATION
  Report Type: 
  Country: None (occurrence: None)
  Receive Date: 20070223
  Receipt Date: 20061005
  Transmission Date: 20070707
  Serious: Yes (Other)
  Sender: FDA-Public Use
  Company Number: WAES 0610USA04946

PATIENT
  Sex: 0

DRUGS (2)
  1. SIMVASTATIN [Suspect]
     Dosage: 80 MG/DAILY/PO
     Route: 048
  2. ZOCOR [Concomitant]

REACTIONS (1)
  - RHABDOMYOLYSIS [None]
